FAERS Safety Report 9258305 (Version 1)
Quarter: 2013Q1

REPORT INFORMATION
  Report Type: Spontaneous
  Country: US (occurrence: None)
  Receive Date: 20121212
  Receipt Date: 20121212
  Transmission Date: 20140127
  Serious: No
  Sender: FDA-Public Use
  Company Number: 1210USA002227

PATIENT
  Age: 53 Year
  Sex: Female
  Weight: 72.6 kg

DRUGS (3)
  1. PEG-INTRON [Suspect]
     Indication: HEPATITIS C
     Dates: start: 20120423
  2. RIBAVIRIN [Suspect]
     Indication: HEPATITIS C
     Dosage: REDUCED TO 1 IN THE AM AND 1 IN THE PM
     Dates: start: 20120423
  3. VICTRELIS [Suspect]
     Indication: HEPATITIS C
     Dates: start: 20120521

REACTIONS (16)
  - Red blood cell count decreased [None]
  - Memory impairment [None]
  - Asthenia [None]
  - Dizziness [None]
  - Dyspnoea [None]
  - Vomiting [None]
  - Nausea [None]
  - Dry mouth [None]
  - White blood cell count decreased [None]
  - Alopecia [None]
  - Constipation [None]
  - Haematochezia [None]
  - Pyrexia [None]
  - Emotional disorder [None]
  - Weight decreased [None]
  - Insomnia [None]
